FAERS Safety Report 13751101 (Version 2)
Quarter: 2020Q2

REPORT INFORMATION
  Report Type: Spontaneous
  Country: US (occurrence: US)
  Receive Date: 20170713
  Receipt Date: 20200615
  Transmission Date: 20200713
  Serious: Yes (Death, Other)
  Sender: FDA-Public Use
  Company Number: US-BRISTOL-MYERS SQUIBB COMPANY-BMS-2017-062307

PATIENT
  Sex: Male

DRUGS (1)
  1. OPDIVO [Suspect]
     Active Substance: NIVOLUMAB
     Indication: RENAL DISORDER
     Dosage: 340 MG, Q2WK
     Route: 042
     Dates: start: 20160309

REACTIONS (5)
  - Hypoaesthesia [Unknown]
  - Death [Fatal]
  - Cerebral haemorrhage [Unknown]
  - Dysarthria [Unknown]
  - Intentional product use issue [Unknown]
